FAERS Safety Report 7005731-5 (Version None)
Quarter: 2010Q3

REPORT INFORMATION
  Report Type: 
  Country: None (occurrence: None)
  Receive Date: 20100921
  Receipt Date: 20100915
  Transmission Date: 20110219
  Serious: Yes (Hospitalization)
  Sender: FDA-Public Use
  Company Number: JP-MERCK-1009USA03648

PATIENT
  Age: 85 Year
  Sex: Female
  Weight: 65 kg

DRUGS (6)
  1. JANUVIA [Suspect]
     Indication: TYPE 2 DIABETES MELLITUS
     Route: 048
     Dates: start: 20100109, end: 20100112
  2. JANUVIA [Suspect]
     Route: 048
     Dates: start: 20100114
  3. GLIMEPIRIDE [Suspect]
     Indication: TYPE 2 DIABETES MELLITUS
     Route: 048
     Dates: end: 20100112
  4. GLIMEPIRIDE [Suspect]
     Dosage: DIVIDED DOSE FREQUENCY IS UNKNOWN
     Route: 048
     Dates: start: 20100116
  5. PIOGLITAZONE HYDROCHLORIDE [Concomitant]
     Indication: TYPE 2 DIABETES MELLITUS
     Route: 048
  6. FUROSEMIDE [Concomitant]
     Route: 048

REACTIONS (1)
  - HYPOGLYCAEMIC UNCONSCIOUSNESS [None]
